FAERS Safety Report 5242657-1 (Version None)
Quarter: 2007Q1

REPORT INFORMATION
  Report Type: 
  Country: None (occurrence: None)
  Receive Date: 20070221
  Receipt Date: 20070220
  Transmission Date: 20070707
  Serious: Yes (Other)
  Sender: FDA-Public Use
  Company Number: US-RB-005249-07

PATIENT
  Sex: Female
  Weight: 45 kg

DRUGS (4)
  1. SUBOXONE [Suspect]
     Route: 060
     Dates: start: 20070206, end: 20070207
  2. SUBOXONE [Suspect]
     Route: 060
     Dates: start: 20070208, end: 20070213
  3. SUBOXONE [Suspect]
     Route: 060
     Dates: start: 20070214
  4. FOSAMAX [Concomitant]
     Route: 048

REACTIONS (8)
  - ABDOMINAL DISTENSION [None]
  - ANXIETY [None]
  - DISORIENTATION [None]
  - DIZZINESS [None]
  - ERUCTATION [None]
  - FLATULENCE [None]
  - HEADACHE [None]
  - PANCREATITIS [None]
